FAERS Safety Report 9269282 (Version 1)
Quarter: 2013Q2

REPORT INFORMATION
  Report Type: Spontaneous
  Country: US (occurrence: US)
  Receive Date: 20130503
  Receipt Date: 20130503
  Transmission Date: 20140414
  Serious: Yes (Hospitalization)
  Sender: FDA-Public Use
  Company Number: US-PFIZER INC-2013135610

PATIENT
  Sex: Male
  Weight: 109 kg

DRUGS (12)
  1. ZOLOFT [Suspect]
     Indication: DEPRESSION
     Dosage: UNK
  2. EFFEXOR [Suspect]
     Indication: DEPRESSION
     Dosage: UNK
  3. ALPRAZOLAM [Suspect]
     Indication: ANXIETY
     Dosage: UNK
  4. ALPRAZOLAM [Suspect]
     Indication: STRESS
  5. CELEXA [Suspect]
     Indication: DEPRESSION
     Dosage: UNK
  6. PROZAC [Suspect]
     Indication: DEPRESSION
     Dosage: UNK
  7. TOFRANIL [Suspect]
     Indication: DEPRESSION
     Dosage: UNK
  8. PAXIL [Suspect]
     Indication: DEPRESSION
     Dosage: UNK
  9. EMSAM [Suspect]
     Indication: DEPRESSION
     Dosage: UNK
  10. CRESTOR [Concomitant]
     Indication: BLOOD CHOLESTEROL INCREASED
     Dosage: 5 MG DAILY
  11. SYNTHROID [Concomitant]
     Indication: THYROID DISORDER
     Dosage: 37.5 UG DAILY
  12. ACIPHEX [Concomitant]
     Indication: GASTROOESOPHAGEAL REFLUX DISEASE
     Dosage: 20 MG DAILY

REACTIONS (4)
  - Myocardial infarction [Unknown]
  - Anxiety [Unknown]
  - Palpitations [Unknown]
  - Drug ineffective [Unknown]
